FAERS Safety Report 9013528 (Version 1)
Quarter: 2013Q1

REPORT INFORMATION
  Report Type: Spontaneous
  Country: US (occurrence: None)
  Receive Date: 20130107
  Receipt Date: 20130107
  Transmission Date: 20140127
  Serious: Yes (Other)
  Sender: FDA-Public Use
  Company Number: None

PATIENT
  Sex: Female
  Weight: 46.72 kg

DRUGS (3)
  1. FEXOFENADINE [Suspect]
     Dosage: 180MG DAILY PO
     Route: 048
     Dates: end: 200706
  2. ZYRTEC [Suspect]
     Dosage: 10MG DAILY PO
     Route: 048
     Dates: start: 200706
  3. ZYRTEC [Suspect]
     Dosage: 10MG DAILY PO
     Route: 048
     Dates: start: 200706

REACTIONS (4)
  - Nausea [None]
  - Sedation [None]
  - Malaise [None]
  - Drug ineffective [None]
